FAERS Safety Report 10581277 (Version 1)
Quarter: 2014Q4

REPORT INFORMATION
  Report Type: Spontaneous
  Country: US (occurrence: US)
  Receive Date: 20141113
  Receipt Date: 20141113
  Transmission Date: 20150529
  Serious: No
  Sender: FDA-Public Use
  Company Number: US-009507513-1411USA001500

PATIENT
  Age: 33 Year
  Sex: Female

DRUGS (3)
  1. PROVENTIL [Suspect]
     Active Substance: ALBUTEROL
     Indication: ASTHMA
     Dosage: MULTIPLE PUFFS AS NEEDED, STRENGTH 90 MICROGRAM 1 STANDARD DOSE OF 6.7
     Route: 055
     Dates: start: 1985
  2. PROVENTIL [Suspect]
     Active Substance: ALBUTEROL
     Dosage: MULTIPLE PUFFS AS NEEDED, STRENGTH 90 MICROGRAM 1 STANDARD DOSE OF 6.7
     Route: 055
     Dates: end: 2009
  3. PROVENTIL [Suspect]
     Active Substance: ALBUTEROL
     Dosage: UNK,STRENGTH 90 MICROGRAM 1 STANDARD DOSE OF 6.7
     Route: 055
     Dates: start: 2014

REACTIONS (3)
  - Drug ineffective [Recovered/Resolved]
  - Product quality issue [Unknown]
  - Drug administration error [Unknown]

NARRATIVE: CASE EVENT DATE: 1999
